FAERS Safety Report 9024487 (Version 1)
Quarter: 2013Q1

REPORT INFORMATION
  Report Type: Report from Study
  Country: CA (occurrence: CA)
  Receive Date: 20130121
  Receipt Date: 20130121
  Transmission Date: 20140127
  Serious: Yes (Other)
  Sender: FDA-Public Use
  Company Number: CA-JNJFOC-20130106150

PATIENT
  Age: 29 None
  Sex: Female
  Weight: 48.5 kg

DRUGS (9)
  1. REMICADE [Suspect]
     Indication: CROHN^S DISEASE
     Dosage: ONCE EVERY 6 (DURATION UNSPECIFIED)
     Route: 042
     Dates: start: 200611
  2. STEROIDS NOS [Concomitant]
     Route: 065
  3. DILAUDID [Concomitant]
     Route: 065
  4. FIXICAL [Concomitant]
     Route: 065
  5. NEURONTIN [Concomitant]
     Route: 065
  6. OXYCONTIN [Concomitant]
     Route: 065
  7. PAXIL [Concomitant]
     Route: 065
  8. ATIVAN [Concomitant]
     Route: 065
  9. RESTORALAX [Concomitant]
     Route: 065

REACTIONS (2)
  - Spinal fusion surgery [Recovered/Resolved]
  - Constipation [Unknown]
